FAERS Safety Report 21302578 (Version 2)
Quarter: 2022Q3

REPORT INFORMATION
  Report Type: Other
  Country: US (occurrence: None)
  Receive Date: 20220907
  Receipt Date: 20220929
  Transmission Date: 20221026
  Serious: Yes (Hospitalization)
  Sender: FDA-Public Use
  Company Number: US-ROCHE-3171784

PATIENT
  Age: 43 Year
  Sex: Male
  Weight: 99.426 kg

DRUGS (9)
  1. OCREVUS [Suspect]
     Active Substance: OCRELIZUMAB
     Indication: Multiple sclerosis
     Route: 065
     Dates: start: 202111
  2. TYLENOL [Concomitant]
     Active Substance: ACETAMINOPHEN
     Indication: Pain
  3. TOPAMAX [Concomitant]
     Active Substance: TOPIRAMATE
     Route: 048
     Dates: start: 20210807, end: 20220807
  4. PAMELOR [Concomitant]
     Active Substance: NORTRIPTYLINE HYDROCHLORIDE
     Route: 048
     Dates: start: 20220329
  5. PROVENTIL HFA [Concomitant]
     Active Substance: ALBUTEROL SULFATE
     Dosage: 2 PUFF ?90 MCG/ACT
     Dates: start: 20220306
  6. MOTRIN [Concomitant]
     Active Substance: IBUPROFEN
  7. VITAMIN D3 [Concomitant]
     Active Substance: CHOLECALCIFEROL
     Route: 048
     Dates: start: 20210807, end: 20220807
  8. ZESTRIL [Concomitant]
     Active Substance: LISINOPRIL
     Route: 048
     Dates: start: 20210807, end: 20220807
  9. ALEVE [Concomitant]
     Active Substance: NAPROXEN SODIUM
     Route: 048

REACTIONS (11)
  - Pruritus [Unknown]
  - Malaise [Unknown]
  - Memory impairment [Unknown]
  - Heart rate irregular [Unknown]
  - Pain in jaw [Unknown]
  - Arthralgia [Unknown]
  - Confusional state [Unknown]
  - Abnormal dreams [Unknown]
  - Disturbance in attention [Unknown]
  - Tearfulness [Unknown]
  - Balance disorder [Unknown]
